FAERS Safety Report 12282666 (Version 6)
Quarter: 2016Q3

REPORT INFORMATION
  Report Type: Report from Study
  Country: US (occurrence: US)
  Receive Date: 20160419
  Receipt Date: 20160914
  Transmission Date: 20161109
  Serious: Yes (Hospitalization, Disabling, Other)
  Sender: FDA-Public Use
  Company Number: US-GILEAD-2016-0209207

PATIENT
  Age: 77 Year
  Sex: Female

DRUGS (2)
  1. VENTAVIS [Concomitant]
     Active Substance: ILOPROST
  2. AMBRISENTAN [Suspect]
     Active Substance: AMBRISENTAN
     Indication: PRODUCT USED FOR UNKNOWN INDICATION
     Dosage: 10 MG, QD
     Route: 065
     Dates: start: 20150415

REACTIONS (5)
  - Cardiac disorder [Unknown]
  - Memory impairment [Unknown]
  - Respiratory distress [Unknown]
  - Depressed level of consciousness [Recovered/Resolved]
  - Cerebrovascular accident [Recovered/Resolved]

NARRATIVE: CASE EVENT DATE: 20160319
